FAERS Safety Report 5803009-6 (Version None)
Quarter: 2008Q2

REPORT INFORMATION
  Report Type: 
  Country: None (occurrence: None)
  Receive Date: 20080626
  Receipt Date: 20080612
  Transmission Date: 20081010
  Serious: Yes (Hospitalization)
  Sender: FDA-Public Use
  Company Number: THYM-1000718

PATIENT
  Age: 67 Year
  Sex: Male
  Weight: 78 kg

DRUGS (7)
  1. THYMOGLOBULIN [Suspect]
     Indication: PROPHYLAXIS AGAINST TRANSPLANT REJECTION
     Dosage: 1.5 MG/KG, QOD,
     Dates: start: 20080131, end: 20080204
  2. PROGRAF [Concomitant]
  3. CELLCEPT [Concomitant]
  4. BACTRIM [Concomitant]
  5. PEGASYS (PEGINTERFERON ALFA-2A, RIBAVIRIN) [Concomitant]
  6. REBETOL [Concomitant]
  7. METHYLPREDNISOLONE [Concomitant]

REACTIONS (1)
  - LIVER TRANSPLANT REJECTION [None]
